FAERS Safety Report 9393397 (Version 1)
Quarter: 2013Q3

REPORT INFORMATION
  Report Type: Report from Study
  Country: BR (occurrence: BR)
  Receive Date: 20130710
  Receipt Date: 20130710
  Transmission Date: 20140515
  Serious: Yes (Other)
  Sender: FDA-Public Use
  Company Number: PHHY2013BR072676

PATIENT
  Age: 62 Year
  Sex: Male
  Weight: 51 kg

DRUGS (1)
  1. SANDOSTATIN LAR [Suspect]
     Indication: NEUROENDOCRINE TUMOUR
     Dosage: 1 DF, PER MONTH
     Dates: start: 20111208

REACTIONS (4)
  - Nodule [Recovering/Resolving]
  - Liver disorder [Recovering/Resolving]
  - Hepatic neoplasm [Recovering/Resolving]
  - Weight increased [Recovering/Resolving]
